FAERS Safety Report 9342937 (Version 1)
Quarter: 2013Q2

REPORT INFORMATION
  Report Type: Spontaneous
  Country: IN (occurrence: None)
  Receive Date: 20130607
  Receipt Date: 20130607
  Transmission Date: 20140414
  Serious: Yes (Hospitalization)
  Sender: FDA-Public Use
  Company Number: FK201301870

PATIENT
  Age: 2 Year
  Sex: Male

DRUGS (2)
  1. AZITHROMYCIN [Suspect]
     Indication: PYREXIA
     Dosage: 200 MG, 20 MG/KG, ORAL
     Route: 048
  2. MIDAZOLAM [Suspect]
     Indication: SEDATION
     Route: 048

REACTIONS (3)
  - Drug interaction [None]
  - Sedation [None]
  - Somnolence [None]
